FAERS Safety Report 16921363 (Version 1)
Quarter: 2019Q4

REPORT INFORMATION
  Report Type: Spontaneous
  Country: US (occurrence: US)
  Receive Date: 20191015
  Receipt Date: 20191015
  Transmission Date: 20200122
  Serious: No
  Sender: FDA-Public Use
  Company Number: US-SA-2019SA277527

PATIENT
  Age: 51 Year
  Sex: Female

DRUGS (1)
  1. ARAVA [Suspect]
     Active Substance: LEFLUNOMIDE
     Indication: RHEUMATOID ARTHRITIS
     Dosage: 20 MG, QD
     Route: 065
     Dates: start: 201903

REACTIONS (8)
  - Chest pain [Unknown]
  - Chest discomfort [Unknown]
  - Pruritus [Unknown]
  - Tinnitus [Unknown]
  - Dizziness [Unknown]
  - Dyspnoea [Unknown]
  - Urticaria [Unknown]
  - Alopecia [Unknown]
